FAERS Safety Report 4565235-6 (Version None)
Quarter: 2005Q1

REPORT INFORMATION
  Report Type: 
  Country: None (occurrence: None)
  Receive Date: 20050127
  Receipt Date: 20050127
  Transmission Date: 20050727
  Serious: Yes (Hospitalization)
  Sender: FDA-Public Use
  Company Number: None

PATIENT
  Age: 77 Year
  Sex: Male
  Weight: 81.3 kg

DRUGS (7)
  1. WARFARIN [Suspect]
     Dosage: ORAL
     Route: 047
  2. FUROSEMIDE [Concomitant]
  3. MECLIZINE HCL [Concomitant]
  4. ALBUTEROL SULFATE AND IPRATROPIUM BROMIDE [Concomitant]
  5. GLIPIZIDE [Concomitant]
  6. ASIPRIN [Concomitant]
  7. ACETAMINOPHEN [Concomitant]

REACTIONS (1)
  - INTERNATIONAL NORMALISED RATIO INCREASED [None]
